FAERS Safety Report 9992034 (Version 2)
Quarter: 2014Q2

REPORT INFORMATION
  Report Type: Spontaneous
  Country: US (occurrence: US)
  Receive Date: 20140310
  Receipt Date: 20140604
  Transmission Date: 20141212
  Serious: Yes (Hospitalization)
  Sender: FDA-Public Use
  Company Number: US-ASTELLAS-2014US000656

PATIENT
  Sex: Male

DRUGS (2)
  1. XTANDI [Suspect]
     Indication: COLON CANCER
     Route: 048
     Dates: start: 20140102
  2. XTANDI [Suspect]
     Indication: PROSTATE CANCER
     Route: 048

REACTIONS (3)
  - Hospitalisation [Unknown]
  - Fatigue [Unknown]
  - Off label use [Unknown]
